FAERS Safety Report 9280752 (Version 3)
Quarter: 2014Q1

REPORT INFORMATION
  Report Type: Spontaneous
  Country: GB (occurrence: None)
  Receive Date: 20130503
  Receipt Date: 20140207
  Transmission Date: 20141002
  Serious: Yes (Other)
  Sender: FDA-Public Use
  Company Number: AUR-APL-2013-03370

PATIENT
  Age: 85 Year
  Sex: Female
  Weight: 69.85 kg

DRUGS (15)
  1. PERINDOPRIL [Suspect]
     Indication: HYPERTENSION
     Route: 048
     Dates: end: 20130412
  2. ADCAL (CARBAZOCHROME) [Concomitant]
  3. ALENDRONIC ACID (ALENDRONIC ACID) [Concomitant]
  4. ASPIRIN (ACETYLSALICYLIC ACID) [Concomitant]
  5. ATORVASTATIN (ATORVASTATIN) [Concomitant]
  6. BENDROFLUMETHIAZIDE (BENDROFLUMETHIAZIDE) [Concomitant]
  7. BRINZOLAMIDE (BRINZOLAMIDE) [Concomitant]
  8. CLOPIDOGREL (CLOPIDOGREL) [Concomitant]
  9. NAPROXEN (NAPROXEN) [Concomitant]
  10. OMEPRAZOLE (OMEPRAZOLE) [Concomitant]
  11. PARACETAMOL (PARACETAMOL) [Concomitant]
  12. PREGABALIN (PREGABALIN) [Concomitant]
  13. RANITIDINE (RANITIDINE) [Concomitant]
  14. SYSTANE (RHINARIS) [Concomitant]
  15. TIMOLOL (TIMOLOL) (NONE) [Concomitant]

REACTIONS (2)
  - Raynaud^s phenomenon [None]
  - Left ventricular dysfunction [None]
